FAERS Safety Report 7662014-8 (Version None)
Quarter: 2011Q3

REPORT INFORMATION
  Report Type: 
  Country: None (occurrence: None)
  Receive Date: 20110805
  Receipt Date: 20101202
  Transmission Date: 20111222
  Serious: No
  Sender: FDA-Public Use
  Company Number: US-ABBOTT-10P-163-0689017-00

PATIENT
  Sex: Male
  Weight: 93.978 kg

DRUGS (8)
  1. M.V.I. [Concomitant]
     Indication: PRODUCT USED FOR UNKNOWN INDICATION
  2. NIASPAN [Suspect]
     Indication: HYPERLIPIDAEMIA
     Dates: start: 20100901
  3. UNKNOWN MEDICATION [Concomitant]
     Indication: BLOOD PRESSURE
  4. NIASPAN [Suspect]
  5. ASPIRIN [Concomitant]
     Indication: PRODUCT USED FOR UNKNOWN INDICATION
  6. METFORMIN HCL [Concomitant]
     Indication: PRODUCT USED FOR UNKNOWN INDICATION
  7. UNKNOWN MEDICATION [Concomitant]
     Indication: SINUS DISORDER
  8. STOOL SOFTENER [Concomitant]
     Indication: CONSTIPATION PROPHYLAXIS

REACTIONS (3)
  - CHILLS [None]
  - GASTROINTESTINAL INFLAMMATION [None]
  - HOT FLUSH [None]
